FAERS Safety Report 10253479 (Version 1)
Quarter: 2014Q2

REPORT INFORMATION
  Report Type: Spontaneous
  Country: AE (occurrence: AE)
  Receive Date: 20140623
  Receipt Date: 20140623
  Transmission Date: 20141212
  Serious: Yes (Other)
  Sender: FDA-Public Use
  Company Number: PHHY2014AE075380

PATIENT
  Age: 41 Year
  Sex: Male

DRUGS (7)
  1. TEGRETOL [Suspect]
     Indication: EPILEPSY
     Dosage: 100 MG IN MORNING AND 200 MG IN NIGHT
  2. TEGRETOL [Suspect]
     Dosage: DOSE INCREASED
  3. TRILEPTAL [Suspect]
     Indication: PARTIAL SEIZURES
     Dosage: 300 MG, BID
     Route: 048
     Dates: start: 201405
  4. TRILEPTAL [Suspect]
     Dosage: 450 MG, BID
     Route: 048
     Dates: end: 20140615
  5. RHUMALGAN [Concomitant]
     Dosage: UNK UKN, UNK
  6. TUSSIVAN [Concomitant]
     Dosage: UNK UKN, UNK
  7. PARACETAMOL [Concomitant]
     Dosage: UNK UKN, UNK

REACTIONS (3)
  - Stevens-Johnson syndrome [Unknown]
  - Rash [Unknown]
  - Lower respiratory tract infection [Unknown]
